FAERS Safety Report 15067256 (Version 1)
Quarter: 2018Q2

REPORT INFORMATION
  Report Type: Spontaneous
  Country: PK (occurrence: PK)
  Receive Date: 20180626
  Receipt Date: 20180626
  Transmission Date: 20180711
  Serious: Yes (Other)
  Sender: FDA-Public Use
  Company Number: PK-SAKK-2018SA159513AA

PATIENT
  Age: 70 Year
  Sex: Female

DRUGS (1)
  1. DAONIL [Suspect]
     Active Substance: GLYBURIDE
     Indication: HYPERGLYCAEMIA
     Dosage: 5 MG, QD
     Route: 048
     Dates: start: 2010

REACTIONS (5)
  - Blood glucose increased [Unknown]
  - Dry mouth [Unknown]
  - Nephrolithiasis [Unknown]
  - Pollakiuria [Unknown]
  - Hyperglycaemia [Unknown]

NARRATIVE: CASE EVENT DATE: 2018
